FAERS Safety Report 22653730 (Version 1)
Quarter: 2023Q2

REPORT INFORMATION
  Report Type: Report from Study
  Country: ES (occurrence: ES)
  Receive Date: 20230629
  Receipt Date: 20230629
  Transmission Date: 20230721
  Serious: Yes (Other)
  Sender: FDA-Public Use
  Company Number: ES-TAKEDA-2023TUS063310

PATIENT
  Age: 62 Year
  Sex: Female

DRUGS (8)
  1. TEDUGLUTIDE [Suspect]
     Active Substance: TEDUGLUTIDE
     Indication: Short-bowel syndrome
     Dosage: 3.100 MILLIGRAM, QD
     Route: 042
     Dates: start: 20091223, end: 20100811
  2. TEDUGLUTIDE [Suspect]
     Active Substance: TEDUGLUTIDE
     Indication: Short-bowel syndrome
     Dosage: 3.100 MILLIGRAM, QD
     Route: 042
     Dates: start: 20091223, end: 20100811
  3. TEDUGLUTIDE [Suspect]
     Active Substance: TEDUGLUTIDE
     Indication: Short-bowel syndrome
     Dosage: 3.100 MILLIGRAM, QD
     Route: 042
     Dates: start: 20091223, end: 20100811
  4. TEDUGLUTIDE [Suspect]
     Active Substance: TEDUGLUTIDE
     Indication: Short-bowel syndrome
     Dosage: 3.100 MILLIGRAM, QD
     Route: 042
     Dates: start: 20091223, end: 20100811
  5. ATROPINE [Concomitant]
     Active Substance: ATROPINE
     Indication: Chemotherapy side effect prophylaxis
     Dosage: 0.25 MILLIGRAM, SINGLE
     Route: 058
     Dates: start: 20221018, end: 20221018
  6. ATROPINE [Concomitant]
     Active Substance: ATROPINE
     Dosage: 0.25 MILLIGRAM, SINGLE
     Route: 058
     Dates: start: 20221102, end: 20221102
  7. ATROPINE [Concomitant]
     Active Substance: ATROPINE
     Dosage: 0.25 MILLIGRAM, SINGLE
     Route: 058
     Dates: start: 20230110, end: 20230110
  8. SALINE [Concomitant]
     Active Substance: SODIUM CHLORIDE
     Indication: Prophylaxis against dehydration
     Dosage: 750.00 MILLILITER, SINGLE
     Route: 042
     Dates: start: 20230321, end: 20230321

REACTIONS (1)
  - Bicytopenia [Recovered/Resolved]

NARRATIVE: CASE EVENT DATE: 20220404
